FAERS Safety Report 5203886-6 (Version None)
Quarter: 2007Q1

REPORT INFORMATION
  Report Type: 
  Country: None (occurrence: None)
  Receive Date: 20070110
  Receipt Date: 20061228
  Transmission Date: 20070707
  Serious: Yes (Other)
  Sender: FDA-Public Use
  Company Number: US-SHR-US-2006-018477

PATIENT
  Age: 36 Year
  Sex: Male
  Weight: 51.701 kg

DRUGS (8)
  1. BETASERON [Suspect]
     Indication: RELAPSING-REMITTING MULTIPLE SCLEROSIS
     Dosage: 8 MIU, EVERY 2D
     Route: 058
     Dates: start: 20060526
  2. CIALIS [Concomitant]
  3. ANTIDEPRESSANTS [Concomitant]
  4. CORTICOSTEROIDS [Concomitant]
  5. ALEVE [Concomitant]
  6. LEXAPRO [Concomitant]
     Dosage: 10 MG, 1X/DAY
  7. ATIVAN [Concomitant]
     Dosage: .5 MG, 1X/DAY
  8. PREDNISONE TAB [Concomitant]

REACTIONS (8)
  - AMNESIA [None]
  - CONFUSIONAL STATE [None]
  - DIZZINESS [None]
  - FALL [None]
  - INJURY [None]
  - LOSS OF CONSCIOUSNESS [None]
  - PAIN IN EXTREMITY [None]
  - STRESS [None]
